FAERS Safety Report 8956873 (Version 1)
Quarter: 2012Q4

REPORT INFORMATION
  Report Type: 
  Country: US (occurrence: US)
  Receive Date: 20121210
  Receipt Date: 20121210
  Transmission Date: 20130627
  Serious: No
  Sender: FDA-Public Use
  Company Number: US-B.I. PHARMACEUTICALS,INC./RIDGEFIELD-2012-BI-01469BP

PATIENT
  Age: 66 Year
  Sex: Female
  Weight: 101 kg

DRUGS (1)
  1. TRADJENTA [Suspect]
     Indication: TYPE 2 DIABETES MELLITUS
     Dosage: 5 mg
     Route: 048
     Dates: start: 20121121

REACTIONS (2)
  - Dysphonia [Not Recovered/Not Resolved]
  - Dysphagia [Recovered/Resolved]
